FAERS Safety Report 4553003-0 (Version None)
Quarter: 2005Q1

REPORT INFORMATION
  Report Type: 
  Country: None (occurrence: None)
  Receive Date: 20050113
  Receipt Date: 20041227
  Transmission Date: 20050727
  Serious: Yes (Death)
  Sender: FDA-Public Use
  Company Number: 002

PATIENT
  Sex: Female
  Weight: 104.3273 kg

DRUGS (14)
  1. FAZACLO [Suspect]
     Indication: SCHIZOPHRENIA
     Dosage: 300 MG PO, HS
     Route: 048
     Dates: start: 20041106, end: 20041224
  2. FLUOXETINE [Concomitant]
  3. ALPRAZOLAM [Concomitant]
  4. DISIPRIMINE [Concomitant]
  5. PHENTERMINE [Concomitant]
  6. LITHIUM [Concomitant]
  7. WELLBUTRIN [Concomitant]
  8. CLOZARIL [Concomitant]
  9. ZYPREXA [Concomitant]
  10. NEURONTIN [Concomitant]
  11. TRAZODONE HCL [Concomitant]
  12. EFFEXOR [Concomitant]
  13. PAXIL [Concomitant]
  14. KLONOPIN [Concomitant]

REACTIONS (5)
  - ABDOMINAL DISTENSION [None]
  - CYANOSIS [None]
  - GALLBLADDER OPERATION [None]
  - RESPIRATORY ARREST [None]
  - VOMITING [None]
